FAERS Safety Report 22088842 (Version 5)
Quarter: 2024Q4

REPORT INFORMATION
  Report Type: Report from Study
  Country: SA (occurrence: SA)
  Receive Date: 20230313
  Receipt Date: 20241017
  Transmission Date: 20250114
  Serious: Yes (Hospitalization)
  Sender: ROCHE
  Company Number: SA-ROCHE-3298627

PATIENT
  Age: 17 Year
  Sex: Male
  Weight: 25.5 kg

DRUGS (4)
  1. EVRYSDI [Suspect]
     Active Substance: RISDIPLAM
     Indication: Spinal muscular atrophy
     Route: 048
     Dates: start: 20230201, end: 20241013
  2. EVRYSDI [Suspect]
     Active Substance: RISDIPLAM
     Route: 048
  3. EVRYSDI [Suspect]
     Active Substance: RISDIPLAM
     Route: 048
  4. EVRYSDI [Suspect]
     Active Substance: RISDIPLAM
     Route: 048

REACTIONS (7)
  - Vomiting [Recovered/Resolved]
  - Diarrhoea [Not Recovered/Not Resolved]
  - Gastrointestinal inflammation [Not Recovered/Not Resolved]
  - Urinary retention [Not Recovered/Not Resolved]
  - Product dose omission issue [Unknown]
  - Back pain [Recovering/Resolving]
  - Drug ineffective [Unknown]

NARRATIVE: CASE EVENT DATE: 20230227
